FAERS Safety Report 16382078 (Version 1)
Quarter: 2019Q2

REPORT INFORMATION
  Report Type: Spontaneous
  Country: US (occurrence: US)
  Receive Date: 20190425
  Receipt Date: 20190425
  Transmission Date: 20190711
  Serious: Yes (Hospitalization)
  Sender: FDA-Public Use
  Company Number: None

PATIENT
  Age: 18 Year
  Sex: Female
  Weight: 64 kg

DRUGS (2)
  1. IFOSFAMIDE. [Suspect]
     Active Substance: IFOSFAMIDE
     Dates: end: 20180228
  2. DOXORUBICIN HYDROCHLORIDE. [Suspect]
     Active Substance: DOXORUBICIN HYDROCHLORIDE
     Dates: end: 20180317

REACTIONS (7)
  - Cellulitis [None]
  - Staphylococcal infection [None]
  - Inflammation [None]
  - Implant site extravasation [None]
  - Culture positive [None]
  - Device related infection [None]
  - Aspiration joint [None]

NARRATIVE: CASE EVENT DATE: 20180406
